FAERS Safety Report 15555787 (Version 1)
Quarter: 2018Q4

REPORT INFORMATION
  Report Type: Spontaneous
  Country: FR (occurrence: FR)
  Receive Date: 20181026
  Receipt Date: 20181026
  Transmission Date: 20190205
  Serious: Yes (Other)
  Sender: FDA-Public Use
  Company Number: FR-PROVELL PHARMACEUTICALS-2058085

PATIENT
  Age: 87 Year
  Sex: Female

DRUGS (1)
  1. EUTHYROX [Suspect]
     Active Substance: LEVOTHYROXINE SODIUM
     Indication: PRODUCT USED FOR UNKNOWN INDICATION

REACTIONS (16)
  - Fatigue [None]
  - Suicidal ideation [None]
  - Vitamin D decreased [None]
  - Depression [None]
  - Aggression [None]
  - Decreased activity [None]
  - Balance disorder [None]
  - Fall [None]
  - Asthenia [None]
  - Apathy [None]
  - Irritability [None]
  - Blood thyroid stimulating hormone increased [Not Recovered/Not Resolved]
  - Somnolence [None]
  - Alopecia [None]
  - Myalgia [None]
  - Hyperhidrosis [None]

NARRATIVE: CASE EVENT DATE: 2017
